FAERS Safety Report 23080354 (Version 1)
Quarter: 2023Q4

REPORT INFORMATION
  Report Type: Spontaneous
  Country: US (occurrence: US)
  Receive Date: 20231018
  Receipt Date: 20231018
  Transmission Date: 20240110
  Serious: No
  Sender: FDA-Public Use
  Company Number: US-BRISTOL-MYERS SQUIBB COMPANY-2023-148385

PATIENT

DRUGS (2)
  1. MAVACAMTEN [Suspect]
     Active Substance: MAVACAMTEN
     Indication: Hypertrophic cardiomyopathy
     Dosage: DOSE : 5MG, 10MG;     FREQ : DAILY
     Dates: start: 202211
  2. MAVACAMTEN [Suspect]
     Active Substance: MAVACAMTEN
     Dosage: DOSE : 5MG, 10MG;     FREQ : DAILY

REACTIONS (1)
  - Transvalvular pressure gradient increased [Unknown]

NARRATIVE: CASE EVENT DATE: 20230901
